FAERS Safety Report 7361910-9 (Version None)
Quarter: 2011Q1

REPORT INFORMATION
  Report Type: 
  Country: None (occurrence: None)
  Receive Date: 20110318
  Receipt Date: 20110309
  Transmission Date: 20110831
  Serious: Yes (Death, Hospitalization)
  Sender: FDA-Public Use
  Company Number: CH-BRISTOL-MYERS SQUIBB COMPANY-15597453

PATIENT
  Age: 80 Year
  Sex: Male
  Weight: 85 kg

DRUGS (9)
  1. DIGOXIN [Concomitant]
     Route: 048
     Dates: start: 20010611, end: 20010727
  2. ALDACTONE [Concomitant]
     Route: 048
     Dates: end: 20010727
  3. TENORMIN [Concomitant]
     Route: 048
     Dates: end: 20010727
  4. ZYLORIC [Concomitant]
     Route: 048
     Dates: end: 20010727
  5. MINITRAN [Concomitant]
     Route: 062
     Dates: start: 20010604, end: 20010727
  6. LASIX [Concomitant]
     Route: 048
     Dates: end: 20010727
  7. PRAVASTATIN [Suspect]
     Route: 048
     Dates: end: 20010720
  8. ZAROXOLYN [Concomitant]
     Route: 048
     Dates: end: 20010727
  9. ASPIRIN [Concomitant]
     Dosage: 100MG/DAY
     Route: 048
     Dates: end: 20010727

REACTIONS (4)
  - RENAL FAILURE [None]
  - HEPATOTOXICITY [None]
  - HEPATIC ENZYME INCREASED [None]
  - CARDIAC FAILURE [None]
